FAERS Safety Report 25988430 (Version 2)
Quarter: 2025Q4

REPORT INFORMATION
  Report Type: Spontaneous
  Country: EU (occurrence: EU)
  Receive Date: 20251103
  Receipt Date: 20251106
  Transmission Date: 20260118
  Serious: No
  Sender: CSL BEHRING
  Company Number: EU-BEH-2025221053

PATIENT
  Age: 36 Year
  Sex: Male
  Weight: 52 kg

DRUGS (3)
  1. PRIVIGEN [Suspect]
     Active Substance: HUMAN IMMUNOGLOBULIN G
     Indication: Product used for unknown indication
     Dosage: UNK
     Route: 065
  2. PRIVIGEN [Suspect]
     Active Substance: HUMAN IMMUNOGLOBULIN G
     Dosage: UNK
     Route: 065
  3. PRIVIGEN [Suspect]
     Active Substance: HUMAN IMMUNOGLOBULIN G
     Dosage: UNK
     Route: 065

REACTIONS (4)
  - Hepatitis E antibody positive [Unknown]
  - Polymerase chain reaction negative [Unknown]
  - Arbovirus test positive [Unknown]
  - False positive investigation result [Unknown]
